FAERS Safety Report 20194353 (Version 2)
Quarter: 2022Q1

REPORT INFORMATION
  Report Type: Spontaneous
  Country: IT (occurrence: IT)
  Receive Date: 20211216
  Receipt Date: 20220111
  Transmission Date: 20220423
  Serious: Yes (Death, Hospitalization, Other)
  Sender: FDA-Public Use
  Company Number: IT-PFM-2021-10544

PATIENT
  Age: 79 Year
  Sex: Female

DRUGS (3)
  1. AZITHROMYCIN [Suspect]
     Active Substance: AZITHROMYCIN
     Indication: COVID-19
     Dosage: UNK
  2. PREDNISONE [Suspect]
     Active Substance: PREDNISONE
     Indication: COVID-19
     Dosage: UNK
     Route: 065
  3. HEPARIN [Suspect]
     Active Substance: HEPARIN SODIUM
     Indication: COVID-19
     Dosage: UNK
     Route: 016

REACTIONS (4)
  - Death [Fatal]
  - Urosepsis [Unknown]
  - Off label use [Unknown]
  - Product use in unapproved indication [Unknown]

NARRATIVE: CASE EVENT DATE: 20210304
